FAERS Safety Report 18369651 (Version 7)
Quarter: 2021Q3

REPORT INFORMATION
  Report Type: Spontaneous
  Country: US (occurrence: US)
  Receive Date: 20201012
  Receipt Date: 20210813
  Transmission Date: 20211014
  Serious: Yes (Other)
  Sender: FDA-Public Use
  Company Number: US-SA-2020SA274849

PATIENT
  Age: 54 Year
  Sex: Female

DRUGS (2)
  1. DUPIXENT [Suspect]
     Active Substance: DUPILUMAB
     Dosage: 300 MG, QOW
     Route: 058
     Dates: start: 202010
  2. DUPIXENT [Suspect]
     Active Substance: DUPILUMAB
     Indication: DERMATITIS ATOPIC
     Dosage: 600 MG, 1X
     Route: 058
     Dates: start: 20201002, end: 20201002

REACTIONS (12)
  - Fluid retention [Unknown]
  - Eye swelling [Unknown]
  - Lacrimation increased [Unknown]
  - Seasonal allergy [Unknown]
  - Glaucoma [Unknown]
  - Paranasal sinus hypersecretion [Unknown]
  - Sneezing [Unknown]
  - Rhinorrhoea [Unknown]
  - Condition aggravated [Unknown]
  - Sinus disorder [Unknown]
  - Surgery [Unknown]
  - Cataract [Unknown]

NARRATIVE: CASE EVENT DATE: 2020
